FAERS Safety Report 5406305-X (Version None)
Quarter: 2007Q3

REPORT INFORMATION
  Report Type: 
  Country: None (occurrence: None)
  Receive Date: 20070806
  Receipt Date: 20070801
  Transmission Date: 20080115
  Serious: Yes (Hospitalization, Other)
  Sender: FDA-Public Use
  Company Number: DE-BRISTOL-MYERS SQUIBB COMPANY-13695457

PATIENT
  Age: 52 Year
  Sex: Male

DRUGS (4)
  1. BARACLUDE [Suspect]
     Indication: HEPATITIS B
     Dates: start: 20061101
  2. PREDNISONE TAB [Suspect]
     Indication: POLYARTHRITIS
  3. AZULFIDINE [Suspect]
     Indication: POLYARTHRITIS
  4. PANTOPRAZOLE SODIUM [Suspect]
     Indication: REFLUX OESOPHAGITIS

REACTIONS (5)
  - GASTROINTESTINAL HYPOMOTILITY [None]
  - PNEUMONIA [None]
  - SEPSIS [None]
  - SUBILEUS [None]
  - TRACHEOBRONCHITIS [None]
